FAERS Safety Report 19806934 (Version 1)
Quarter: 2021Q3

REPORT INFORMATION
  Report Type: Spontaneous
  Country: US (occurrence: US)
  Receive Date: 20210909
  Receipt Date: 20210909
  Transmission Date: 20211014
  Serious: Yes (Hospitalization, Other)
  Sender: FDA-Public Use
  Company Number: US-MICRO LABS LIMITED-ML2021-02157

PATIENT
  Age: 4 Year
  Sex: Female

DRUGS (3)
  1. LEVETIRACETAM. [Suspect]
     Active Substance: LEVETIRACETAM
  2. SALINE [Suspect]
     Active Substance: SODIUM CHLORIDE
  3. SODIUM ACETATE. [Concomitant]
     Active Substance: SODIUM ACETATE

REACTIONS (1)
  - Nephrolithiasis [Recovered/Resolved]
